FAERS Safety Report 12463414 (Version 1)
Quarter: 2016Q2

REPORT INFORMATION
  Report Type: Spontaneous
  Country: US (occurrence: None)
  Receive Date: 20160613
  Receipt Date: 20160613
  Transmission Date: 20160815
  Serious: Yes (Hospitalization)
  Sender: FDA-Public Use
  Company Number: None

PATIENT
  Age: 60 Year
  Sex: Male
  Weight: 68.6 kg

DRUGS (1)
  1. LOSARTAN. [Suspect]
     Active Substance: LOSARTAN
     Indication: HYPERTENSION
     Route: 048
     Dates: start: 20150817, end: 20160113

REACTIONS (8)
  - Weight decreased [None]
  - Nausea [None]
  - Vomiting [None]
  - Dyspnoea [None]
  - Hypokalaemia [None]
  - Hyponatraemia [None]
  - Dysphagia [None]
  - Angioedema [None]

NARRATIVE: CASE EVENT DATE: 20160107
